FAERS Safety Report 20820155 (Version 1)
Quarter: 2022Q2

REPORT INFORMATION
  Report Type: Spontaneous
  Country: US (occurrence: None)
  Receive Date: 20220511
  Receipt Date: 20220511
  Transmission Date: 20220720
  Serious: Yes (Other)
  Sender: FDA-Public Use
  Company Number: None

PATIENT
  Age: 62 Year
  Sex: Male
  Weight: 99.79 kg

DRUGS (18)
  1. HUMIRA [Suspect]
     Active Substance: ADALIMUMAB
     Indication: Uveitis
     Dosage: FREQUENCY : EVERY OTHER WEEK;?
     Dates: start: 20210515, end: 20211130
  2. HUMIRA [Suspect]
     Active Substance: ADALIMUMAB
     Indication: Epiretinal membrane
  3. HUMIRA [Suspect]
     Active Substance: ADALIMUMAB
     Indication: Retinal degeneration
  4. HUMIRA [Suspect]
     Active Substance: ADALIMUMAB
     Indication: Cataract nuclear
  5. HUMIRA [Suspect]
     Active Substance: ADALIMUMAB
     Indication: Iridocyclitis
  6. TIMOLO [Concomitant]
  7. BRIMONIDINE [Concomitant]
     Active Substance: BRIMONIDINE TARTRATE
  8. THERATEARS [Concomitant]
     Active Substance: CARBOXYMETHYLCELLULOSE SODIUM
  9. LATANOPROST [Concomitant]
     Active Substance: LATANOPROST
  10. DORZOLAMIDE [Concomitant]
     Active Substance: DORZOLAMIDE
  11. METHOTREXATE [Concomitant]
     Active Substance: METHOTREXATE
  12. FOLIC ACID [Concomitant]
     Active Substance: FOLIC ACID
  13. AMLODIPINE [Concomitant]
     Active Substance: AMLODIPINE BESYLATE
  14. METFORMIN [Concomitant]
     Active Substance: METFORMIN HYDROCHLORIDE
  15. fiber tablets [Concomitant]
  16. VITAMINS [Concomitant]
     Active Substance: VITAMINS
  17. men over 50 [Concomitant]
  18. fiber tablets [Concomitant]

REACTIONS (5)
  - Hypoaesthesia [None]
  - Hypoaesthesia [None]
  - Paraesthesia [None]
  - Joint stiffness [None]
  - Peripheral coldness [None]
